FAERS Safety Report 12552470 (Version 2)
Quarter: 2016Q4

REPORT INFORMATION
  Report Type: Spontaneous
  Country: US (occurrence: US)
  Receive Date: 20160713
  Receipt Date: 20161205
  Transmission Date: 20170207
  Serious: No
  Sender: FDA-Public Use
  Company Number: US-PFIZER INC-2016337605

PATIENT
  Sex: Male
  Weight: 127 kg

DRUGS (4)
  1. ROXICODONE [Suspect]
     Active Substance: OXYCODONE HYDROCHLORIDE
     Indication: PAIN
     Dosage: 30 MG, 4X/DAY
     Dates: start: 2006
  2. FENTANYL CITRATE. [Suspect]
     Active Substance: FENTANYL CITRATE
     Indication: PAIN
  3. FENTANYL. [Suspect]
     Active Substance: FENTANYL
     Indication: PAIN
     Dosage: 75 UG, PATCH
     Route: 062
     Dates: start: 2006
  4. ZICONOTIDE [Suspect]
     Active Substance: ZICONOTIDE
     Indication: PAIN

REACTIONS (3)
  - Quality of life decreased [Unknown]
  - Drug ineffective [Unknown]
  - Feeling abnormal [Unknown]
